FAERS Safety Report 11507900 (Version 1)
Quarter: 2015Q3

REPORT INFORMATION
  Report Type: Report from Study
  Country: BE (occurrence: BE)
  Receive Date: 20150915
  Receipt Date: 20150915
  Transmission Date: 20151125
  Serious: Yes (Death, Other)
  Sender: FDA-Public Use
  Company Number: BE-AMGEN-BELSL2015065963

PATIENT
  Age: 57 Year
  Sex: Male

DRUGS (1)
  1. NPLATE [Suspect]
     Active Substance: ROMIPLOSTIM
     Indication: IMMUNE THROMBOCYTOPENIC PURPURA
     Dosage: 0.5 ML, QWK
     Route: 058
     Dates: start: 20140228, end: 20150618

REACTIONS (5)
  - Renal pain [Not Recovered/Not Resolved]
  - Parosmia [Recovering/Resolving]
  - Dysgeusia [Recovering/Resolving]
  - Investigation abnormal [Unknown]
  - Cardiac arrest [Fatal]

NARRATIVE: CASE EVENT DATE: 20150515
